FAERS Safety Report 4646090-2 (Version None)
Quarter: 2005Q2

REPORT INFORMATION
  Report Type: 
  Country: None (occurrence: None)
  Receive Date: 20050427
  Receipt Date: 20040810
  Transmission Date: 20051028
  Serious: Yes (Hospitalization, Other)
  Sender: FDA-Public Use
  Company Number: US-GLAXOSMITHKLINE-A0522152A

PATIENT
  Sex: Female

DRUGS (1)
  1. ZOFRAN [Suspect]
     Route: 042
     Dates: start: 20040701

REACTIONS (2)
  - CONVULSION [None]
  - HYPERSENSITIVITY [None]
